FAERS Safety Report 9503355 (Version 1)
Quarter: 2013Q1

REPORT INFORMATION
  Report Type: Spontaneous
  Country: US (occurrence: None)
  Receive Date: 20130107
  Receipt Date: 20130107
  Transmission Date: 20140127
  Serious: No
  Sender: FDA-Public Use
  Company Number: PHEH2012US017612

PATIENT
  Age: 56 Year
  Sex: Female

DRUGS (6)
  1. GILENYA (FINGOLIMOD) CAPSULE, 0.5MG [Suspect]
     Indication: MULTIPLE SCLEROSIS
     Route: 048
     Dates: start: 20120418
  2. ATENOLOL (ATENOLOL) [Concomitant]
  3. PRIMIDONE (PRIMIDONE) [Concomitant]
  4. GABAPENTIN (GABAPENTIN) [Concomitant]
  5. AGGRENOX (ACETYLSALICYLIC ACID, DIPYRIDAMOLE) [Concomitant]
  6. FAMPRIDINE (FAMPRIDINE) [Concomitant]

REACTIONS (2)
  - Visual impairment [None]
  - Dyspnoea [None]
